FAERS Safety Report 6217701-5 (Version None)
Quarter: 2009Q2

REPORT INFORMATION
  Report Type: 
  Country: None (occurrence: None)
  Receive Date: 20090603
  Receipt Date: 20090603
  Transmission Date: 20091009
  Serious: No
  Sender: FDA-Public Use
  Company Number: None

PATIENT
  Age: 66 Year
  Sex: Female
  Weight: 51.2565 kg

DRUGS (1)
  1. CARBIDOPA AND LEVODOPA [Suspect]
     Dosage: 25/100 TID PO EARLY 2009
     Route: 048
     Dates: start: 20090101

REACTIONS (1)
  - NAUSEA [None]
